FAERS Safety Report 5328569-3 (Version None)
Quarter: 2007Q2

REPORT INFORMATION
  Report Type: 
  Country: None (occurrence: None)
  Receive Date: 20070518
  Receipt Date: 20070508
  Transmission Date: 20071010
  Serious: Yes (Hospitalization)
  Sender: FDA-Public Use
  Company Number: GB-ASTRAZENECA-2007AP02656

PATIENT
  Age: 20223 Day
  Sex: Female

DRUGS (3)
  1. ARIMIDEX [Suspect]
     Indication: PROPHYLAXIS
     Route: 048
     Dates: start: 20061023
  2. ACTONEL CODE NOT BROKEN [Suspect]
     Indication: OSTEOPOROSIS PROPHYLAXIS
  3. CALCIUM WITH VITAMIN D [Suspect]
     Indication: OSTEOPOROSIS PROPHYLAXIS

REACTIONS (1)
  - GASTROOESOPHAGEAL REFLUX DISEASE [None]
